FAERS Safety Report 15428528 (Version 1)
Quarter: 2018Q3

REPORT INFORMATION
  Report Type: Spontaneous
  Country: US (occurrence: US)
  Receive Date: 20180919
  Receipt Date: 20180919
  Transmission Date: 20181010
  Serious: No
  Sender: FDA-Public Use
  Company Number: None

PATIENT
  Age: 50 Year
  Sex: Male

DRUGS (1)
  1. EPCLUSA [Suspect]
     Active Substance: SOFOSBUVIR\VELPATASVIR
     Dates: start: 20180816

REACTIONS (4)
  - Extra dose administered [None]
  - Muscular weakness [None]
  - Fatigue [None]
  - Post procedural infection [None]

NARRATIVE: CASE EVENT DATE: 20180828
